FAERS Safety Report 20665794 (Version 5)
Quarter: 2022Q2

REPORT INFORMATION
  Report Type: Report from Study
  Country: TH (occurrence: None)
  Receive Date: 20220402
  Receipt Date: 20220630
  Transmission Date: 20220721
  Serious: Yes (Life-Threatening, Hospitalization)
  Sender: FDA-Public Use
  Company Number: TH-ROCHE-2888344

PATIENT
  Age: 60 Year
  Sex: Male
  Weight: 59.5 kg

DRUGS (110)
  1. ATEZOLIZUMAB [Suspect]
     Active Substance: ATEZOLIZUMAB
     Indication: Oesophageal squamous cell carcinoma metastatic
     Dosage: ON 04/AUG/2021, RECEIVED THE MOST RECENT DOSE OF BLINDED ATEZOLIZUMAB PRIOR TO SERIOUS ADVERSE EVENT
     Route: 041
     Dates: start: 20210518
  2. TIRAGOLUMAB [Suspect]
     Active Substance: TIRAGOLUMAB
     Indication: Oesophageal squamous cell carcinoma metastatic
     Dosage: ON 04/AUG/2021, RECEIVED THE MOST RECENT DOSE OF BLINDED TIRAGOLUMAB PRIOR TO SERIOUS ADVERSE EVENT
     Route: 042
     Dates: start: 20210518
  3. PACLITAXEL [Suspect]
     Active Substance: PACLITAXEL
     Indication: Oesophageal squamous cell carcinoma metastatic
     Dosage: ON 04/AUG/2021, RECEIVED THE MOST RECENT DOSE OF PACLITAXEL (297 MG) PRIOR TO SERIOUS ADVERSE EVENT
     Route: 042
     Dates: start: 20210518
  4. CISPLATIN [Suspect]
     Active Substance: CISPLATIN
     Indication: Oesophageal squamous cell carcinoma metastatic
     Dosage: ON 04/AUG/2021, RECEIVED THE MOST RECENT DOSE OF CISPLATIN (125 MG) PRIOR TO SERIOUS ADVERSE EVENT O
     Route: 042
     Dates: start: 20210518
  5. FAMOTIDINE [Concomitant]
     Active Substance: FAMOTIDINE
     Dates: start: 20210518, end: 20210518
  6. FAMOTIDINE [Concomitant]
     Active Substance: FAMOTIDINE
     Dates: start: 20210720, end: 20210720
  7. FAMOTIDINE [Concomitant]
     Active Substance: FAMOTIDINE
     Dates: start: 20210810, end: 20210810
  8. FAMOTIDINE [Concomitant]
     Active Substance: FAMOTIDINE
     Dates: start: 20210831, end: 20210831
  9. FAMOTIDINE [Concomitant]
     Active Substance: FAMOTIDINE
     Dates: start: 20210608, end: 20210608
  10. FAMOTIDINE [Concomitant]
     Active Substance: FAMOTIDINE
     Dates: start: 20210629, end: 20210629
  11. FAMOTIDINE [Concomitant]
     Active Substance: FAMOTIDINE
     Dates: start: 20210920
  12. ONDANSETRON [Concomitant]
     Active Substance: ONDANSETRON
     Indication: Nausea
     Route: 042
     Dates: start: 20210518, end: 20210518
  13. ONDANSETRON [Concomitant]
     Active Substance: ONDANSETRON
     Dates: start: 20210720, end: 20210724
  14. ONDANSETRON [Concomitant]
     Active Substance: ONDANSETRON
     Dates: start: 20210721, end: 20210725
  15. ONDANSETRON [Concomitant]
     Active Substance: ONDANSETRON
     Dates: start: 20210810, end: 20210810
  16. ONDANSETRON [Concomitant]
     Active Substance: ONDANSETRON
     Dates: start: 20210831, end: 20210831
  17. ONDANSETRON [Concomitant]
     Active Substance: ONDANSETRON
     Dates: start: 20210519
  18. ONDANSETRON [Concomitant]
     Active Substance: ONDANSETRON
     Dates: start: 20210608, end: 20210608
  19. ONDANSETRON [Concomitant]
     Active Substance: ONDANSETRON
     Dates: start: 20210609, end: 20210613
  20. ONDANSETRON [Concomitant]
     Active Substance: ONDANSETRON
     Dates: start: 20210629, end: 20210629
  21. ONDANSETRON [Concomitant]
     Active Substance: ONDANSETRON
     Route: 048
     Dates: start: 20220307
  22. ONDANSETRON [Concomitant]
     Active Substance: ONDANSETRON
     Dates: start: 20210811, end: 20210815
  23. ONDANSETRON [Concomitant]
     Active Substance: ONDANSETRON
     Dates: start: 20210901, end: 20210905
  24. ONDANSETRON [Concomitant]
     Active Substance: ONDANSETRON
     Route: 042
     Dates: start: 20220316, end: 20220317
  25. MANNITOL [Concomitant]
     Active Substance: MANNITOL
     Dates: start: 20210518, end: 20210518
  26. MANNITOL [Concomitant]
     Active Substance: MANNITOL
     Dates: start: 20210720, end: 20210720
  27. MANNITOL [Concomitant]
     Active Substance: MANNITOL
     Dates: start: 20210810, end: 20210810
  28. MANNITOL [Concomitant]
     Active Substance: MANNITOL
     Dates: start: 20210831, end: 20210831
  29. MANNITOL [Concomitant]
     Active Substance: MANNITOL
     Dates: start: 20210608, end: 20210608
  30. MANNITOL [Concomitant]
     Active Substance: MANNITOL
     Dates: start: 20210629, end: 20210629
  31. SALINE [Concomitant]
     Active Substance: SODIUM CHLORIDE
     Dates: start: 20210518
  32. SALINE [Concomitant]
     Active Substance: SODIUM CHLORIDE
     Dates: start: 20210719, end: 20210720
  33. SALINE [Concomitant]
     Active Substance: SODIUM CHLORIDE
     Dates: start: 20210809, end: 20210810
  34. SALINE [Concomitant]
     Active Substance: SODIUM CHLORIDE
     Dates: start: 20210831, end: 20210831
  35. SALINE [Concomitant]
     Active Substance: SODIUM CHLORIDE
     Dates: start: 20210517, end: 20210518
  36. SALINE [Concomitant]
     Active Substance: SODIUM CHLORIDE
     Dates: start: 20210607, end: 20210608
  37. SALINE [Concomitant]
     Active Substance: SODIUM CHLORIDE
     Dates: start: 20210628, end: 20210629
  38. SALINE [Concomitant]
     Active Substance: SODIUM CHLORIDE
     Dates: start: 20210830, end: 20210831
  39. MAGNESIUM SULFATE [Concomitant]
     Active Substance: MAGNESIUM SULFATE
     Dates: start: 20210518
  40. MAGNESIUM SULFATE [Concomitant]
     Active Substance: MAGNESIUM SULFATE
     Dates: start: 20210719, end: 20210720
  41. MAGNESIUM SULFATE [Concomitant]
     Active Substance: MAGNESIUM SULFATE
     Dates: start: 20210809, end: 20210810
  42. MAGNESIUM SULFATE [Concomitant]
     Active Substance: MAGNESIUM SULFATE
     Dates: start: 20210830, end: 20210831
  43. MAGNESIUM SULFATE [Concomitant]
     Active Substance: MAGNESIUM SULFATE
     Dates: start: 20210517, end: 20210518
  44. MAGNESIUM SULFATE [Concomitant]
     Active Substance: MAGNESIUM SULFATE
     Dates: start: 20210607, end: 20210608
  45. MAGNESIUM SULFATE [Concomitant]
     Active Substance: MAGNESIUM SULFATE
     Dates: start: 20210628, end: 20210629
  46. MAGNESIUM SULFATE [Concomitant]
     Active Substance: MAGNESIUM SULFATE
     Dates: start: 20210719, end: 20210720
  47. POTASSIUM CHLORIDE [Concomitant]
     Active Substance: POTASSIUM CHLORIDE
     Dates: start: 20210518
  48. POTASSIUM CHLORIDE [Concomitant]
     Active Substance: POTASSIUM CHLORIDE
     Dates: start: 20210719, end: 20210720
  49. POTASSIUM CHLORIDE [Concomitant]
     Active Substance: POTASSIUM CHLORIDE
     Dates: start: 20210809, end: 20210810
  50. POTASSIUM CHLORIDE [Concomitant]
     Active Substance: POTASSIUM CHLORIDE
     Dates: start: 20210830, end: 20210830
  51. POTASSIUM CHLORIDE [Concomitant]
     Active Substance: POTASSIUM CHLORIDE
     Dates: start: 20210517, end: 20210518
  52. POTASSIUM CHLORIDE [Concomitant]
     Active Substance: POTASSIUM CHLORIDE
     Dates: start: 20210607, end: 20210608
  53. POTASSIUM CHLORIDE [Concomitant]
     Active Substance: POTASSIUM CHLORIDE
     Dates: start: 20210628, end: 20210629
  54. DEXAMETHASONE [Concomitant]
     Active Substance: DEXAMETHASONE
     Route: 048
     Dates: start: 20210519, end: 20210521
  55. DEXAMETHASONE [Concomitant]
     Active Substance: DEXAMETHASONE
     Route: 042
     Dates: start: 20210720, end: 20210720
  56. DEXAMETHASONE [Concomitant]
     Active Substance: DEXAMETHASONE
     Route: 048
     Dates: start: 20210721, end: 20210723
  57. DEXAMETHASONE [Concomitant]
     Active Substance: DEXAMETHASONE
     Route: 042
     Dates: start: 20210810, end: 20210810
  58. DEXAMETHASONE [Concomitant]
     Active Substance: DEXAMETHASONE
     Route: 048
     Dates: start: 20210811, end: 20210813
  59. DEXAMETHASONE [Concomitant]
     Active Substance: DEXAMETHASONE
     Route: 042
     Dates: start: 20210831, end: 20210831
  60. DEXAMETHASONE [Concomitant]
     Active Substance: DEXAMETHASONE
     Route: 048
     Dates: start: 20210901, end: 20210903
  61. DEXAMETHASONE [Concomitant]
     Active Substance: DEXAMETHASONE
     Route: 042
     Dates: start: 20210518, end: 20210518
  62. DEXAMETHASONE [Concomitant]
     Active Substance: DEXAMETHASONE
     Route: 042
     Dates: start: 20210608, end: 20210608
  63. DEXAMETHASONE [Concomitant]
     Active Substance: DEXAMETHASONE
     Route: 048
     Dates: start: 20210609, end: 20210611
  64. DEXAMETHASONE [Concomitant]
     Active Substance: DEXAMETHASONE
     Route: 042
     Dates: start: 20210629, end: 20210629
  65. DEXAMETHASONE [Concomitant]
     Active Substance: DEXAMETHASONE
     Route: 048
     Dates: start: 20210630, end: 20210704
  66. DEXAMETHASONE [Concomitant]
     Active Substance: DEXAMETHASONE
     Route: 048
     Dates: start: 20210811, end: 20210813
  67. OLANZAPINE [Concomitant]
     Active Substance: OLANZAPINE
     Dates: start: 20210519, end: 20210523
  68. OLANZAPINE [Concomitant]
     Active Substance: OLANZAPINE
     Dates: start: 20210720, end: 20210725
  69. OLANZAPINE [Concomitant]
     Active Substance: OLANZAPINE
     Dates: start: 20210801, end: 20210814
  70. OLANZAPINE [Concomitant]
     Active Substance: OLANZAPINE
     Dates: start: 20210831, end: 20210904
  71. OLANZAPINE [Concomitant]
     Active Substance: OLANZAPINE
     Dates: start: 20210609, end: 20210613
  72. TRAMADOL [Concomitant]
     Active Substance: TRAMADOL
     Indication: Myalgia
     Dates: start: 20210521, end: 20211001
  73. TRAMADOL [Concomitant]
     Active Substance: TRAMADOL
     Dates: start: 20210613, end: 20211001
  74. MAGNESIUM CHLORIDE [Concomitant]
     Active Substance: MAGNESIUM CHLORIDE
     Indication: Hypomagnesaemia
     Dates: start: 20210727, end: 20210730
  75. MAGNESIUM CHLORIDE [Concomitant]
     Active Substance: MAGNESIUM CHLORIDE
     Dates: start: 20210816, end: 20210819
  76. CHLORPHENIRAMINE [Concomitant]
     Active Substance: CHLORPHENIRAMINE
     Indication: Prophylaxis
     Dates: start: 20210830, end: 20210830
  77. CHLORPHENIRAMINE [Concomitant]
     Active Substance: CHLORPHENIRAMINE
     Route: 042
     Dates: start: 20210518, end: 20210518
  78. ACETAMINOPHEN [Concomitant]
     Active Substance: ACETAMINOPHEN
     Indication: Pyrexia
     Dates: start: 20210830, end: 20210830
  79. ACETAMINOPHEN [Concomitant]
     Active Substance: ACETAMINOPHEN
     Indication: Pain
     Dates: start: 20210607, end: 20210607
  80. ACETAMINOPHEN [Concomitant]
     Active Substance: ACETAMINOPHEN
     Dates: start: 20210624, end: 20210624
  81. SENOKOT [Concomitant]
     Active Substance: SENNOSIDES
     Indication: Constipation
     Dates: start: 20210621
  82. LORAZEPAM [Concomitant]
     Active Substance: LORAZEPAM
     Indication: Insomnia
     Dates: start: 20210827, end: 20210827
  83. FERLI-6 [Concomitant]
     Indication: Anaemia
     Dates: start: 20210830, end: 20210906
  84. PREVACID [Concomitant]
     Active Substance: LANSOPRAZOLE
     Indication: Flatulence
     Dates: start: 20210831, end: 20210906
  85. AIR-X [Concomitant]
     Indication: Flatulence
     Dates: start: 20210830, end: 20210906
  86. BENADRYL [Concomitant]
     Active Substance: DIPHENHYDRAMINE HYDROCHLORIDE
     Dates: start: 20210720, end: 20210720
  87. BENADRYL [Concomitant]
     Active Substance: DIPHENHYDRAMINE HYDROCHLORIDE
     Dates: start: 20210810, end: 20210810
  88. BENADRYL [Concomitant]
     Active Substance: DIPHENHYDRAMINE HYDROCHLORIDE
     Dates: start: 20210831, end: 20210831
  89. BENADRYL [Concomitant]
     Active Substance: DIPHENHYDRAMINE HYDROCHLORIDE
     Dates: start: 20210608, end: 20210608
  90. BENADRYL [Concomitant]
     Active Substance: DIPHENHYDRAMINE HYDROCHLORIDE
     Dates: start: 20210629, end: 20210629
  91. BENADRYL [Concomitant]
     Active Substance: DIPHENHYDRAMINE HYDROCHLORIDE
     Dates: start: 20210920
  92. TRIAMCINOLONE [Concomitant]
     Active Substance: TRIAMCINOLONE
     Indication: Dermatitis
     Route: 061
     Dates: start: 20220221
  93. DOMPERIDONE [Concomitant]
     Active Substance: DOMPERIDONE
     Indication: Nausea
     Route: 048
     Dates: start: 20220414
  94. NORGESIC (THAILAND) [Concomitant]
     Indication: Myalgia
     Dates: start: 20220201
  95. NORGESIC (THAILAND) [Concomitant]
     Dates: start: 20220214
  96. PREDNISOLONE [Concomitant]
     Active Substance: PREDNISOLONE
     Indication: Adrenal insufficiency
     Route: 048
     Dates: start: 20220418
  97. PREDNISOLONE [Concomitant]
     Active Substance: PREDNISOLONE
     Route: 048
     Dates: start: 20220416, end: 20220416
  98. PREDNISOLONE [Concomitant]
     Active Substance: PREDNISOLONE
     Route: 048
     Dates: start: 20220417, end: 20220417
  99. OMEPRAZOE [Concomitant]
     Route: 048
     Dates: start: 20220413, end: 20220416
  100. ZINC SULFATE [Concomitant]
     Active Substance: ZINC SULFATE
     Route: 048
     Dates: start: 20220413, end: 20220426
  101. METOCLOPRAMIDE HYDROCHLORIDE [Concomitant]
     Active Substance: METOCLOPRAMIDE HYDROCHLORIDE
     Indication: Vomiting
     Route: 042
     Dates: start: 20220413, end: 20220414
  102. THIAMINE [Concomitant]
     Active Substance: THIAMINE
     Route: 042
     Dates: start: 20220413, end: 20220414
  103. COSYNTROPIN [Concomitant]
     Active Substance: COSYNTROPIN
     Indication: ACTH stimulation test
     Route: 042
     Dates: start: 20220415, end: 20220415
  104. HYDROCORTISONE [Concomitant]
     Active Substance: HYDROCORTISONE
     Indication: Adrenal insufficiency
     Route: 042
     Dates: start: 20220415, end: 20220415
  105. SODIUM CHLORIDE [Concomitant]
     Active Substance: SODIUM CHLORIDE
     Route: 042
     Dates: start: 20220414, end: 20220416
  106. METHYL SALICYLATE [Concomitant]
     Active Substance: METHYL SALICYLATE
     Indication: Myalgia
     Dates: start: 20220214
  107. AMOXICILLIN AND CLAVULANATE POTASSIUM [Concomitant]
     Active Substance: AMOXICILLIN\CLAVULANATE POTASSIUM
     Indication: Sepsis
     Route: 048
     Dates: start: 20220318, end: 20220326
  108. OFLOXACIN [Concomitant]
     Active Substance: OFLOXACIN
     Indication: Sepsis
     Route: 048
     Dates: start: 20220316, end: 20220319
  109. DEXTROMETHORPHAN [Concomitant]
     Active Substance: DEXTROMETHORPHAN
     Indication: Throat irritation
     Route: 048
     Dates: start: 20220318, end: 20220319
  110. BETAHISTINE [Concomitant]
     Active Substance: BETAHISTINE
     Indication: Prophylaxis
     Route: 048
     Dates: start: 20220315, end: 20220316

REACTIONS (2)
  - Hyponatraemia [Not Recovered/Not Resolved]
  - Pneumonitis [Recovered/Resolved]

NARRATIVE: CASE EVENT DATE: 20210607
